FAERS Safety Report 10383778 (Version 2)
Quarter: 2014Q3

REPORT INFORMATION
  Report Type: Spontaneous
  Country: US (occurrence: US)
  Receive Date: 20140814
  Receipt Date: 20140904
  Transmission Date: 20150326
  Serious: No
  Sender: FDA-Public Use
  Company Number: US-SHIRE-US201404923

PATIENT
  Age: 6 Year
  Sex: Female
  Weight: 34.92 kg

DRUGS (9)
  1. MIRALAX [Concomitant]
     Active Substance: POLYETHYLENE GLYCOL 3350
     Indication: CONSTIPATION
     Dosage: UNK (1/2 CAPFUL), OTHER (EVERY OTHER DAY)
     Route: 065
     Dates: start: 2012, end: 201405
  2. BENEFIBER                          /00677201/ [Concomitant]
     Indication: CONSTIPATION
     Dosage: UNK (BETWEEN A TEASPOON AND A TABLESPOON), 1X/DAY:QD
     Route: 065
     Dates: start: 201405, end: 201408
  3. VYVANSE [Suspect]
     Active Substance: LISDEXAMFETAMINE DIMESYLATE
     Dosage: 20 MG, 1X/DAY:QD
     Route: 048
     Dates: start: 20140806
  4. BENEFIBER                          /00677201/ [Concomitant]
     Indication: LACTOSE INTOLERANCE
  5. VYVANSE [Suspect]
     Active Substance: LISDEXAMFETAMINE DIMESYLATE
     Indication: ATTENTION DEFICIT/HYPERACTIVITY DISORDER
     Dosage: 20 MG, 1X/DAY:QD
     Route: 048
     Dates: start: 20140107, end: 201405
  6. CEPHALEXIN                         /00145501/ [Concomitant]
     Active Substance: CEPHALEXIN
     Indication: PHARYNGITIS
     Dosage: 400 MG, 4X/DAY:QID
     Route: 048
     Dates: start: 201408
  7. PERMETHRIN. [Concomitant]
     Active Substance: PERMETHRIN
     Indication: ACARODERMATITIS
     Dosage: UNK, UNKNOWN (APPLY AFTER BATH)
     Route: 061
     Dates: start: 201408
  8. CETIRIZINE [Concomitant]
     Active Substance: CETIRIZINE HYDROCHLORIDE
     Indication: SEASONAL ALLERGY
     Dosage: 5 MG, 1X/DAY:QD
     Route: 048
  9. MIRALAX [Concomitant]
     Active Substance: POLYETHYLENE GLYCOL 3350
     Indication: LACTOSE INTOLERANCE
     Dosage: UNK (1/2 CAPFUL), OTHER (EVERY OTHER DAY)
     Route: 065
     Dates: start: 201408

REACTIONS (3)
  - Abnormal loss of weight [Not Recovered/Not Resolved]
  - Emotional disorder [Not Recovered/Not Resolved]
  - Decreased appetite [Not Recovered/Not Resolved]

NARRATIVE: CASE EVENT DATE: 201401
